FAERS Safety Report 9109336 (Version 3)
Quarter: 2013Q4

REPORT INFORMATION
  Report Type: Spontaneous
  Country: DE (occurrence: DE)
  Receive Date: 20130222
  Receipt Date: 20131204
  Transmission Date: 20140711
  Serious: Yes (Hospitalization)
  Sender: FDA-Public Use
  Company Number: DE-ELI_LILLY_AND_COMPANY-DE201302004877

PATIENT
  Sex: Female

DRUGS (4)
  1. HUMINSULIN NPH [Suspect]
     Indication: DIABETES MELLITUS
     Dosage: UNK, PRN
     Route: 058
     Dates: start: 2010
  2. CORTISONE [Concomitant]
  3. HEPARINE [Concomitant]
     Route: 058
  4. FENTANYL [Concomitant]

REACTIONS (8)
  - Pneumonia [Unknown]
  - Pneumonia [Unknown]
  - Abscess [Unknown]
  - Abscess [Unknown]
  - Blood glucose increased [Not Recovered/Not Resolved]
  - Neuropathy peripheral [Unknown]
  - Cataract [Unknown]
  - Bronchitis [Not Recovered/Not Resolved]
